FAERS Safety Report 17253783 (Version 1)
Quarter: 2019Q4

REPORT INFORMATION
  Report Type: Spontaneous
  Country: US (occurrence: US)
  Receive Date: 20191216
  Receipt Date: 20191216
  Transmission Date: 20200122
  Serious: No
  Sender: FDA-Public Use
  Company Number: None

PATIENT
  Sex: Female

DRUGS (1)
  1. HUMIRA [Suspect]
     Active Substance: ADALIMUMAB
     Indication: OSTEOMYELITIS CHRONIC
     Dosage: ?          OTHER DOSE:20MG/0.2ML ;?
     Route: 058
     Dates: start: 20191021

REACTIONS (2)
  - Urticaria [None]
  - Eye swelling [None]
